FAERS Safety Report 9735510 (Version 1)
Quarter: 2013Q4

REPORT INFORMATION
  Report Type: Spontaneous
  Country: US (occurrence: US)
  Receive Date: 20131206
  Receipt Date: 20131206
  Transmission Date: 20140711
  Serious: No
  Sender: FDA-Public Use
  Company Number: US-GILEAD-2009-0023444

PATIENT
  Sex: Male

DRUGS (12)
  1. LETAIRIS [Suspect]
  2. ADVAIR [Concomitant]
  3. SPIRONOLACTONE [Concomitant]
  4. FLUTICASONE [Concomitant]
  5. FUROSEMIDE [Concomitant]
  6. SINGULAIR [Concomitant]
  7. DOCUSATE [Concomitant]
  8. LEVAQUIN [Concomitant]
  9. CARTIA [Concomitant]
  10. FERROUS SULFATE [Concomitant]
  11. DIGOXIN [Concomitant]
  12. SPIRIVA [Concomitant]

REACTIONS (2)
  - Feeling abnormal [Not Recovered/Not Resolved]
  - Dizziness [Not Recovered/Not Resolved]
